FAERS Safety Report 7723555-8 (Version None)
Quarter: 2011Q3

REPORT INFORMATION
  Report Type: 
  Country: None (occurrence: None)
  Receive Date: 20110901
  Receipt Date: 20110825
  Transmission Date: 20111222
  Serious: Yes (Other)
  Sender: FDA-Public Use
  Company Number: US-JNJFOC-20070101105

PATIENT
  Sex: Female

DRUGS (6)
  1. INFLIXIMAB [Suspect]
     Indication: CROHN'S DISEASE
     Route: 042
     Dates: start: 20061020
  2. CIPROFLOXACIN [Concomitant]
  3. INFLIXIMAB [Suspect]
     Dosage: TOTAL 27 DOSES
     Route: 042
     Dates: start: 20060906
  4. INFLIXIMAB [Suspect]
     Route: 042
     Dates: start: 20031111
  5. METRONIDAZOLE [Concomitant]
  6. METHOTREXATE [Concomitant]

REACTIONS (2)
  - CROHN'S DISEASE [None]
  - ANAL ABSCESS [None]
